FAERS Safety Report 4902397-2 (Version None)
Quarter: 2006Q1

REPORT INFORMATION
  Report Type: 
  Country: None (occurrence: None)
  Receive Date: 20060207
  Receipt Date: 20050610
  Transmission Date: 20060701
  Serious: Yes (Other)
  Sender: FDA-Public Use
  Company Number: GB-BRISTOL-MYERS SQUIBB COMPANY-13011051

PATIENT
  Sex: Male

DRUGS (4)
  1. REYATAZ [Suspect]
     Indication: HIV TEST POSITIVE
     Route: 064
     Dates: start: 20040806
  2. TRUVADA [Suspect]
     Indication: HIV TEST POSITIVE
     Dosage: DOSE: 200 MG OF EMTRICITABINE AND 245 MG OF TENOFOVIR DISOPROXIL DAILY
     Route: 064
     Dates: start: 20040806
  3. NORVIR [Concomitant]
     Indication: HIV TEST POSITIVE
     Route: 064
     Dates: start: 20040806
  4. PROTHIADEN [Concomitant]
     Indication: DEPRESSION
     Route: 064
     Dates: start: 20031107

REACTIONS (3)
  - FOETAL CARDIAC DISORDER [None]
  - PERICARDIAL EFFUSION [None]
  - PREGNANCY [None]
